FAERS Safety Report 5068240-9 (Version None)
Quarter: 2006Q3

REPORT INFORMATION
  Report Type: 
  Country: None (occurrence: None)
  Receive Date: 20060802
  Receipt Date: 20050616
  Transmission Date: 20061208
  Serious: Yes (Hospitalization)
  Sender: FDA-Public Use
  Company Number: US-BRISTOL-MYERS SQUIBB COMPANY-13006853

PATIENT
  Age: 80 Year
  Sex: Male

DRUGS (20)
  1. COUMADIN [Suspect]
     Dates: end: 20050615
  2. RENAGEL [Concomitant]
     Dosage: WITH MEALS
  3. THIAMINE HCL [Concomitant]
     Route: 048
  4. VICODIN [Concomitant]
  5. NITROGLYCERIN [Concomitant]
  6. ALLOPURINOL [Concomitant]
     Indication: GOUT
     Route: 048
  7. COREG [Concomitant]
     Indication: HYPERTENSION
     Route: 048
  8. DIGOXIN [Concomitant]
     Indication: CARDIAC FAILURE CONGESTIVE
     Route: 048
  9. FLONASE [Concomitant]
     Route: 045
  10. FOLIC ACID [Concomitant]
     Route: 048
  11. LASIX [Concomitant]
     Route: 048
  12. PROTONIX [Concomitant]
     Indication: GASTROOESOPHAGEAL REFLUX DISEASE
     Route: 048
  13. PAXIL [Concomitant]
     Indication: DEPRESSION
     Route: 048
  14. NEURONTIN [Concomitant]
     Indication: NEUROPATHY
  15. LACTULOSE [Concomitant]
     Route: 048
  16. SYNTHROID [Concomitant]
     Indication: HYPOTHYROIDISM
     Route: 048
  17. MULTI-VITAMIN [Concomitant]
     Route: 048
  18. DUONEB [Concomitant]
     Indication: CHRONIC OBSTRUCTIVE PULMONARY DISEASE
  19. LUNESTA [Concomitant]
     Indication: SLEEP DISORDER
  20. NEPHROCAPS [Concomitant]
     Indication: VITAMIN SUPPLEMENTATION
     Route: 048

REACTIONS (1)
  - INTERNATIONAL NORMALISED RATIO INCREASED [None]
